FAERS Safety Report 18539608 (Version 1)
Quarter: 2020Q4

REPORT INFORMATION
  Report Type: Spontaneous
  Country: US (occurrence: US)
  Receive Date: 20201005
  Receipt Date: 20201005
  Transmission Date: 20210114
  Serious: No
  Sender: FDA-Public Use
  Company Number: None

PATIENT
  Age: 51 Year
  Sex: Female

DRUGS (4)
  1. UMIFENOVIR. [Suspect]
     Active Substance: UMIFENOVIR
     Route: 048
  2. IMMUNOGLOBULINS, INTRAVENOUS [Suspect]
     Active Substance: HUMAN IMMUNOGLOBULIN G
     Route: 042
  3. DEXAMETHASONE. [Suspect]
     Active Substance: DEXAMETHASONE
  4. SHUANGHUANGLIAN [Suspect]
     Active Substance: HERBALS
     Indication: COVID-19
     Route: 048

REACTIONS (6)
  - Dyspnoea [None]
  - Vomiting [None]
  - Off label use [None]
  - Diarrhoea [None]
  - Pneumonia [None]
  - Pyrexia [None]

NARRATIVE: CASE EVENT DATE: 20200117
